FAERS Safety Report 6146613-0 (Version None)
Quarter: 2009Q2

REPORT INFORMATION
  Report Type: 
  Country: None (occurrence: None)
  Receive Date: 20090407
  Receipt Date: 20090330
  Transmission Date: 20091009
  Serious: Yes (Other)
  Sender: FDA-Public Use
  Company Number: US-AMGEN-US338815

PATIENT
  Sex: Female

DRUGS (2)
  1. NPLATE [Suspect]
     Indication: IDIOPATHIC THROMBOCYTOPENIC PURPURA
     Dates: start: 20081002, end: 20081113
  2. NPLATE [Suspect]
     Dates: start: 20090327

REACTIONS (2)
  - PLATELET COUNT DECREASED [None]
  - VASCULAR GRAFT COMPLICATION [None]
